FAERS Safety Report 6317771-X (Version None)
Quarter: 2009Q3

REPORT INFORMATION
  Report Type: 
  Country: None (occurrence: None)
  Receive Date: 20090821
  Receipt Date: 20090810
  Transmission Date: 20100115
  Serious: Yes (Hospitalization, Other)
  Sender: FDA-Public Use
  Company Number: US-PFIZER INC-2004121657

PATIENT
  Sex: Female

DRUGS (7)
  1. PROVERA [Suspect]
     Indication: HORMONE REPLACEMENT THERAPY
     Dosage: 2.5 AND 10 MG
     Route: 065
     Dates: start: 19930329, end: 19960101
  2. PREMARIN [Suspect]
     Indication: HORMONE REPLACEMENT THERAPY
     Dosage: 0.625 MG, UNK
     Dates: start: 19900308, end: 20020108
  3. PREMPRO [Suspect]
     Indication: HORMONE REPLACEMENT THERAPY
     Dosage: UNK
     Route: 065
     Dates: start: 19960916, end: 20011229
  4. PROZAC [Concomitant]
     Indication: FIBROMYALGIA
     Dosage: UNK
     Dates: start: 19980101
  5. NORTRIPTYLINE [Concomitant]
     Indication: FIBROMYALGIA
     Dosage: UNK
     Dates: start: 19980101, end: 20041101
  6. METROGEL [Concomitant]
     Indication: ROSACEA
     Dosage: UNK
     Dates: start: 19990818, end: 20021101
  7. TETRACYCLINE [Concomitant]
     Indication: ROSACEA
     Dosage: UNK
     Dates: start: 19990101, end: 20021101

REACTIONS (1)
  - OVARIAN CANCER [None]
